FAERS Safety Report 18210479 (Version 1)
Quarter: 2020Q3

REPORT INFORMATION
  Report Type: Spontaneous
  Country: US (occurrence: US)
  Receive Date: 20200829
  Receipt Date: 20200829
  Transmission Date: 20201103
  Serious: No
  Sender: FDA-Public Use
  Company Number: US-ENDO PHARMACEUTICALS INC-2019-110521

PATIENT
  Age: 65 Year
  Sex: Female
  Weight: 70.31 kg

DRUGS (1)
  1. PREDNISONE. [Suspect]
     Active Substance: PREDNISONE
     Indication: PRODUCT USED FOR UNKNOWN INDICATION
     Dosage: DOSE PACK FOR 5 DAYS, UNKNOWN
     Route: 065
     Dates: start: 20191111, end: 20191115

REACTIONS (2)
  - Symptom recurrence [Unknown]
  - Insomnia [Unknown]

NARRATIVE: CASE EVENT DATE: 201911
